FAERS Safety Report 19854236 (Version 1)
Quarter: 2021Q3

REPORT INFORMATION
  Report Type: Spontaneous
  Country: US (occurrence: US)
  Receive Date: 20210920
  Receipt Date: 20210920
  Transmission Date: 20211014
  Serious: Yes (Other)
  Sender: FDA-Public Use
  Company Number: NVSC2021US210955

PATIENT
  Age: 69 Year
  Sex: Female

DRUGS (1)
  1. METOPROLOL. [Suspect]
     Active Substance: METOPROLOL
     Indication: PRODUCT USED FOR UNKNOWN INDICATION
     Dosage: UNK
     Route: 065

REACTIONS (7)
  - Exercise tolerance decreased [Unknown]
  - Obesity [Unknown]
  - Arthritis [Unknown]
  - Cardiomegaly [Unknown]
  - Peripheral swelling [Unknown]
  - Heart rate increased [Unknown]
  - Cardiac failure [Unknown]
